FAERS Safety Report 8513762-9 (Version None)
Quarter: 2012Q3

REPORT INFORMATION
  Report Type: 
  Country: None (occurrence: None)
  Receive Date: 20120705
  Receipt Date: 20120620
  Transmission Date: 20120928
  Serious: Yes (Other)
  Sender: FDA-Public Use
  Company Number: 1292154

PATIENT
  Age: 83 Year
  Sex: Female
  Weight: 113 kg

DRUGS (14)
  1. PANTOPRAZOLE [Concomitant]
  2. HYDROCODONE [Concomitant]
  3. CHOLECALCIFEROL [Concomitant]
  4. ASPIRIN W/CODEINE [Concomitant]
  5. MULTIVITAMINS WITH MINERALS /02319901/) [Concomitant]
  6. COENZYME Q10 [Concomitant]
  7. LORAZEPAM [Concomitant]
  8. QUINAPRIL [Concomitant]
  9. NIASPAN [Concomitant]
  10. MORPHINE SULFATE [Suspect]
     Indication: ARTHRALGIA
     Dosage: 4MG, ONCE, INTRAVENOUS (NOT OTHERWISE SPECIFIED), 4MG, ONCE, INTRAVENOUS (NOT OTHERWISE SPECIFIED)
     Route: 042
     Dates: start: 20111025, end: 20111025
  11. MORPHINE SULFATE [Suspect]
     Indication: ARTHRALGIA
     Dosage: 4MG, ONCE, INTRAVENOUS (NOT OTHERWISE SPECIFIED), 4MG, ONCE, INTRAVENOUS (NOT OTHERWISE SPECIFIED)
     Route: 042
     Dates: start: 20111025, end: 20111025
  12. DILTIAZEM [Concomitant]
  13. ASPIRIN [Concomitant]
  14. BAYER BACK + BODY PAIN [Concomitant]

REACTIONS (26)
  - HEART RATE DECREASED [None]
  - MYOCARDIAL INFARCTION [None]
  - MALAISE [None]
  - RESPIRATORY RATE INCREASED [None]
  - PALLOR [None]
  - BLOOD PRESSURE INCREASED [None]
  - BUNDLE BRANCH BLOCK LEFT [None]
  - VOMITING [None]
  - CHEST PAIN [None]
  - RESPIRATORY DISTRESS [None]
  - FOAMING AT MOUTH [None]
  - PULSE ABSENT [None]
  - PULMONARY EMBOLISM [None]
  - TREMOR [None]
  - INCOHERENT [None]
  - SINUS ARRHYTHMIA [None]
  - CARDIAC ARREST [None]
  - PNEUMONIA ASPIRATION [None]
  - NAUSEA [None]
  - APNOEA [None]
  - HYPERHIDROSIS [None]
  - SUPRAVENTRICULAR EXTRASYSTOLES [None]
  - PULMONARY OEDEMA [None]
  - DYSPNOEA [None]
  - CARDIAC DISORDER [None]
  - METABOLIC ACIDOSIS [None]
